FAERS Safety Report 17397377 (Version 1)
Quarter: 2020Q1

REPORT INFORMATION
  Report Type: Spontaneous
  Country: ES (occurrence: ES)
  Receive Date: 20200210
  Receipt Date: 20200210
  Transmission Date: 20200409
  Serious: Yes (Other)
  Sender: FDA-Public Use
  Company Number: NVSC2020ES028255

PATIENT
  Age: 73 Year
  Sex: Female

DRUGS (5)
  1. METHOTREXATE. [Suspect]
     Active Substance: METHOTREXATE
     Indication: RHEUMATOID ARTHRITIS
     Dosage: UNK (1 WEEK)
     Route: 065
  2. APIXABAN [Concomitant]
     Active Substance: APIXABAN
     Indication: ATRIAL FIBRILLATION
     Dosage: UNK, BID
     Route: 065
  3. TERIPARATIDE [Suspect]
     Active Substance: TERIPARATIDE
     Indication: OSTEOPOROSIS
     Dosage: 20 UG, QD
     Route: 058
     Dates: start: 201906
  4. GABAPENTIN. [Concomitant]
     Active Substance: GABAPENTIN
     Indication: OCCIPITAL NEURALGIA
     Dosage: UNK ( EACH EVENING)
     Route: 065
  5. TRYPTIZOLE [Concomitant]
     Active Substance: AMITRIPTYLINE HYDROCHLORIDE
     Indication: OCCIPITAL NEURALGIA
     Dosage: UNK (EACH EVENING)
     Route: 065

REACTIONS (2)
  - Injection site haematoma [Recovered/Resolved]
  - Spinal fracture [Unknown]

NARRATIVE: CASE EVENT DATE: 201909
